FAERS Safety Report 5649268-4 (Version None)
Quarter: 2008Q1

REPORT INFORMATION
  Report Type: 
  Country: None (occurrence: None)
  Receive Date: 20080304
  Receipt Date: 20071212
  Transmission Date: 20080703
  Serious: No
  Sender: FDA-Public Use
  Company Number: US-BAYER-200716841NA

PATIENT
  Age: 40 Year
  Sex: Female

DRUGS (2)
  1. ULTRAVIST 300 [Suspect]
     Indication: COMPUTERISED TOMOGRAM
     Dosage: UNIT DOSE: 95 ML
     Route: 042
     Dates: start: 20071212, end: 20071212
  2. ORAL CONTRAST UNSPECIFIED [Concomitant]
     Route: 048

REACTIONS (1)
  - URTICARIA [None]
